FAERS Safety Report 6374190-8 (Version None)
Quarter: 2009Q3

REPORT INFORMATION
  Report Type: 
  Country: None (occurrence: None)
  Receive Date: 20090924
  Receipt Date: 20090626
  Transmission Date: 20100115
  Serious: Yes (Hospitalization)
  Sender: FDA-Public Use
  Company Number: US-ASTRAZENECA-2009UW17549

PATIENT
  Age: 19 Year
  Sex: Female

DRUGS (4)
  1. SEROQUEL XR [Suspect]
     Route: 048
  2. PRISTIQ [Concomitant]
  3. PRILOSEC OTC [Concomitant]
  4. SYMBYAX [Concomitant]

REACTIONS (1)
  - SUICIDE ATTEMPT [None]
